FAERS Safety Report 5605376-5 (Version None)
Quarter: 2008Q1

REPORT INFORMATION
  Report Type: 
  Country: None (occurrence: None)
  Receive Date: 20080123
  Receipt Date: 20080109
  Transmission Date: 20080703
  Serious: Yes (Other)
  Sender: FDA-Public Use
  Company Number: 2008BI000872

PATIENT
  Age: 30 Year
  Sex: Female

DRUGS (3)
  1. TYSABRI [Suspect]
     Indication: MULTIPLE SCLEROSIS
     Dosage: 300 MG; QM; IV
     Route: 042
     Dates: start: 20070925
  2. IBUPROFEN [Concomitant]
  3. DIAZEPAM [Concomitant]

REACTIONS (15)
  - ABDOMINAL PAIN [None]
  - ABDOMINAL PAIN LOWER [None]
  - ANXIETY [None]
  - CONDITION AGGRAVATED [None]
  - FATIGUE [None]
  - GASTROINTESTINAL DISORDER [None]
  - HAEMATOCHEZIA [None]
  - HEPATOCELLULAR INJURY [None]
  - HYPOAESTHESIA [None]
  - INFUSION RELATED REACTION [None]
  - KIDNEY INFECTION [None]
  - LYMPHOCYTE COUNT INCREASED [None]
  - NEUTROPHIL COUNT INCREASED [None]
  - PARAESTHESIA [None]
  - URINARY TRACT INFECTION [None]
